FAERS Safety Report 4400764-7 (Version None)
Quarter: 2004Q3

REPORT INFORMATION
  Report Type: 
  Country: None (occurrence: None)
  Receive Date: 20040907
  Receipt Date: 20030409
  Transmission Date: 20050211
  Serious: No
  Sender: FDA-Public Use
  Company Number: US-BRISTOL-MYERS SQUIBB COMPANY-12235230

PATIENT
  Age: 64 Year
  Sex: Female
  Weight: 69 kg

DRUGS (3)
  1. COUMADIN [Suspect]
     Indication: THROMBOSIS
     Route: 048
     Dates: start: 20030301, end: 20030304
  2. ATACAND [Concomitant]
  3. ATIVAN [Concomitant]

REACTIONS (2)
  - JOINT STIFFNESS [None]
  - PAIN IN EXTREMITY [None]
